FAERS Safety Report 6802043-7 (Version None)
Quarter: 2010Q2

REPORT INFORMATION
  Report Type: 
  Country: None (occurrence: None)
  Receive Date: 20100629
  Receipt Date: 20070529
  Transmission Date: 20101027
  Serious: No
  Sender: FDA-Public Use
  Company Number: US-PFIZER INC-2007044911

PATIENT

DRUGS (1)
  1. SPIRONOLACTONE [Suspect]
     Indication: HYPERTENSION
     Dosage: BID
     Route: 048

REACTIONS (1)
  - WEIGHT INCREASED [None]
